FAERS Safety Report 14730727 (Version 1)
Quarter: 2018Q2

REPORT INFORMATION
  Report Type: Spontaneous
  Country: US (occurrence: US)
  Receive Date: 20180406
  Receipt Date: 20180406
  Transmission Date: 20180711
  Serious: Yes (Death, Other)
  Sender: FDA-Public Use
  Company Number: US-ZYDUS-019613

PATIENT
  Age: 12 Month
  Sex: Male

DRUGS (1)
  1. OXYCODONE [Suspect]
     Active Substance: OXYCODONE
     Indication: PRODUCT USED FOR UNKNOWN INDICATION
     Route: 065

REACTIONS (6)
  - Hypotension [Unknown]
  - Ventricular arrhythmia [Unknown]
  - Brain death [Fatal]
  - Nervous system disorder [Unknown]
  - Coagulopathy [Unknown]
  - Acute lung injury [Unknown]
